FAERS Safety Report 6602648-2 (Version None)
Quarter: 2010Q1

REPORT INFORMATION
  Report Type: 
  Country: None (occurrence: None)
  Receive Date: 20100218
  Receipt Date: 20100202
  Transmission Date: 20100710
  Serious: No
  Sender: FDA-Public Use
  Company Number: APP201000080

PATIENT
  Age: 78 Year
  Sex: Female
  Weight: 73.4 kg

DRUGS (1)
  1. HEPARIN SODIUM INJECTION [Suspect]
     Indication: SURGERY
     Dosage: 75 IUT, ONCE, INTRAVENOUS BOLUS
     Route: 040

REACTIONS (1)
  - OXYGEN SATURATION DECREASED [None]
